FAERS Safety Report 13657733 (Version 5)
Quarter: 2019Q2

REPORT INFORMATION
  Report Type: Report from Study
  Country: None (occurrence: CA)
  Receive Date: 20170615
  Receipt Date: 20190524
  Transmission Date: 20190711
  Serious: Yes (Hospitalization, Other)
  Sender: FDA-Public Use
  Company Number: CA-ABBVIE-17K-028-2008621-00

PATIENT
  Age: 71 Year
  Sex: Male
  Weight: 85.8 kg

DRUGS (4)
  1. SALOFALK SUPPOSITORIES [Concomitant]
     Indication: COLITIS ULCERATIVE
     Route: 054
     Dates: start: 201705
  2. HUMIRA [Suspect]
     Active Substance: ADALIMUMAB
     Indication: CROHN^S DISEASE
     Route: 058
     Dates: start: 20100917, end: 20170604
  3. HUMIRA [Suspect]
     Active Substance: ADALIMUMAB
     Route: 058
     Dates: start: 201706
  4. MEZAVANT [Concomitant]
     Active Substance: MESALAMINE
     Indication: COLITIS ULCERATIVE
     Route: 048

REACTIONS (11)
  - Defaecation urgency [Unknown]
  - Intervertebral disc protrusion [Unknown]
  - Rash [Not Recovered/Not Resolved]
  - Intervertebral disc injury [Not Recovered/Not Resolved]
  - Drug ineffective [Not Recovered/Not Resolved]
  - Upper respiratory tract infection [Recovered/Resolved]
  - Rectal ulcer [Unknown]
  - Colitis [Recovering/Resolving]
  - Clostridium difficile infection [Recovered/Resolved]
  - Frequent bowel movements [Not Recovered/Not Resolved]
  - Haemoglobin decreased [Recovered/Resolved]

NARRATIVE: CASE EVENT DATE: 2014
